FAERS Safety Report 7610976-7 (Version None)
Quarter: 2011Q3

REPORT INFORMATION
  Report Type: 
  Country: None (occurrence: None)
  Receive Date: 20110715
  Receipt Date: 20110713
  Transmission Date: 20111222
  Serious: Yes (Other)
  Sender: FDA-Public Use
  Company Number: US-PFIZER INC-2011158837

PATIENT
  Sex: Female
  Weight: 89.796 kg

DRUGS (2)
  1. ANTIVERT [Suspect]
     Indication: VERTIGO
     Dosage: 25 MG, AS NEEDED
     Route: 048
     Dates: end: 20090101
  2. MECLIZINE [Suspect]
     Indication: VERTIGO
     Dosage: UNK

REACTIONS (2)
  - VISUAL ACUITY REDUCED [None]
  - FEELING ABNORMAL [None]
